FAERS Safety Report 8719767 (Version 2)
Quarter: 2012Q4

REPORT INFORMATION
  Report Type: 
  Country: JP (occurrence: JP)
  Receive Date: 20120813
  Receipt Date: 20120920
  Transmission Date: 20130627
  Serious: Yes (Hospitalization)
  Sender: FDA-Public Use
  Company Number: PHHY2012JP046334

PATIENT
  Age: 95 Year
  Sex: Male
  Weight: 42 kg

DRUGS (10)
  1. EXELON PATCH [Suspect]
     Indication: DEMENTIA ALZHEIMER^S TYPE
     Dosage: 4.5 mg, daily
     Route: 062
     Dates: start: 20120113, end: 20120224
  2. EXELON PATCH [Suspect]
     Dosage: 9 mg, daily
     Route: 062
     Dates: start: 20120225, end: 20120309
  3. EXELON PATCH [Suspect]
     Dosage: 13.5 mg, daily
     Route: 062
     Dates: start: 20120310, end: 20120323
  4. EXELON PATCH [Suspect]
     Dosage: 18 mg, daily
     Route: 062
     Dates: start: 20120324, end: 20120413
  5. LANSOPRAZOLE [Concomitant]
     Indication: NAUSEA
     Dosage: 30 mg, daily
     Route: 048
     Dates: end: 20120411
  6. REMODELLIN [Concomitant]
     Indication: OSTEOPOROSIS
     Route: 048
     Dates: start: 20120325, end: 20120413
  7. SUNRYTHM [Concomitant]
     Indication: ARRHYTHMIA
     Dosage: 100 mg,daily
     Route: 048
     Dates: start: 20120309, end: 20120411
  8. RETICOLAN [Concomitant]
     Indication: ANAEMIA MACROCYTIC
     Dosage: 1000 ug, UNK
     Route: 048
     Dates: start: 20110106, end: 20120413
  9. YOKUKAN-SAN [Concomitant]
     Indication: DEMENTIA ALZHEIMER^S TYPE
     Dosage: 5 g, daily
     Route: 048
     Dates: start: 20120113, end: 20120411
  10. PHENLASE [Concomitant]
     Indication: DIARRHOEA
     Dosage: 2 DF, UNK
     Route: 048
     Dates: start: 20120406, end: 20120411

REACTIONS (3)
  - Decreased appetite [Recovered/Resolved]
  - Malaise [Recovered/Resolved]
  - Nausea [Recovered/Resolved]
